FAERS Safety Report 4968345-4 (Version None)
Quarter: 2006Q2

REPORT INFORMATION
  Report Type: 
  Country: None (occurrence: None)
  Receive Date: 20060405
  Receipt Date: 20060320
  Transmission Date: 20061013
  Serious: Yes (Other)
  Sender: FDA-Public Use
  Company Number: IND-AE-06-SAN-016

PATIENT
  Age: 81 Year
  Sex: Female

DRUGS (6)
  1. REGURIN (TROSPIUM CHLORIDE) MADAUS [Suspect]
     Indication: HYPERTONIC BLADDER
     Dosage: 20MG - BID- ORAL
     Route: 048
     Dates: start: 20060301
  2. FUROSEMIDE [Concomitant]
  3. DOXAZOSIN [Concomitant]
  4. LOSARTAN POTASSIUM [Concomitant]
  5. TILDIEM (DILTIAZEM) [Concomitant]
  6. PRAVASTATIN [Concomitant]

REACTIONS (1)
  - BRONCHOSPASM [None]
